FAERS Safety Report 5822547-3 (Version None)
Quarter: 2008Q3

REPORT INFORMATION
  Report Type: 
  Country: None (occurrence: None)
  Receive Date: 20080725
  Receipt Date: 20080116
  Transmission Date: 20090109
  Serious: No
  Sender: FDA-Public Use
  Company Number: US-AMGEN-KDL254458

PATIENT
  Age: 48 Year
  Sex: Female
  Weight: 56.8 kg

DRUGS (3)
  1. PROCRIT [Suspect]
     Indication: RENAL FAILURE CHRONIC
     Dates: start: 20071119, end: 20071121
  2. MICARDIS [Concomitant]
     Dates: start: 20070701
  3. GLIPIZIDE [Concomitant]
     Dates: start: 20040101

REACTIONS (7)
  - ADVERSE DRUG REACTION [None]
  - BLOOD GLUCOSE DECREASED [None]
  - BLOOD PRESSURE INCREASED [None]
  - COLD SWEAT [None]
  - DIARRHOEA [None]
  - NAUSEA [None]
  - VOMITING [None]
